FAERS Safety Report 11890989 (Version 1)
Quarter: 2016Q1

REPORT INFORMATION
  Report Type: Report from Study
  Country: PL (occurrence: PL)
  Receive Date: 20160106
  Receipt Date: 20160106
  Transmission Date: 20160526
  Serious: Yes (Hospitalization, Other)
  Sender: FDA-Public Use
  Company Number: PL-ROCHE-1688825

PATIENT
  Age: 16 Year
  Sex: Female
  Weight: 36 kg

DRUGS (10)
  1. ASENTRA [Concomitant]
  2. PROURSAN [Concomitant]
     Dosage: DOSING REPORTED AS 2X1
     Route: 065
  3. VITAMIN A [Concomitant]
     Active Substance: VITAMIN A
  4. SANPROBI [Concomitant]
     Dosage: DOSING REPORTED AS 2X1
     Route: 065
  5. VITAMIN E [Concomitant]
     Active Substance: .ALPHA.-TOCOPHEROL
  6. VENTOLIN [Concomitant]
     Active Substance: ALBUTEROL SULFATE
  7. PULMOZYME [Suspect]
     Active Substance: DORNASE ALFA
     Indication: CYSTIC FIBROSIS
     Route: 065
  8. KREON [Concomitant]
     Active Substance: PANCRELIPASE
     Dosage: DOSING REPORTED AS 3X1000
     Route: 065
  9. CONTROLOC [Concomitant]
     Active Substance: PANTOPRAZOLE SODIUM
     Dosage: CONTROLOC 40
     Route: 065
  10. ESSENTIALE FORTE [Concomitant]
     Dosage: DOSING REPORTED AS 2X1
     Route: 065

REACTIONS (16)
  - Feeling abnormal [Unknown]
  - Eructation [Unknown]
  - Headache [Unknown]
  - Abdominal pain upper [Unknown]
  - Sputum discoloured [Unknown]
  - Dyspepsia [Unknown]
  - Abdominal pain [Unknown]
  - Pain [Unknown]
  - Gastritis haemorrhagic [Recovered/Resolved]
  - Abdominal distension [Unknown]
  - Chest pain [Unknown]
  - Staphylococcus test positive [Not Recovered/Not Resolved]
  - Erosive duodenitis [Recovered/Resolved]
  - Weight decreased [Unknown]
  - Nausea [Unknown]
  - Constipation [Unknown]
